FAERS Safety Report 9607474 (Version 2)
Quarter: 2013Q4

REPORT INFORMATION
  Report Type: Spontaneous
  Country: US (occurrence: US)
  Receive Date: 20131009
  Receipt Date: 20131023
  Transmission Date: 20140711
  Serious: No
  Sender: FDA-Public Use
  Company Number: US-JNJFOC-20130917005

PATIENT
  Sex: Male
  Weight: 90.72 kg

DRUGS (2)
  1. DURAGESIC [Suspect]
     Indication: ARTHRALGIA
     Route: 062
     Dates: start: 2010, end: 2010
  2. DURAGESIC [Suspect]
     Indication: ARTHRALGIA
     Route: 062
     Dates: start: 2010, end: 2012

REACTIONS (5)
  - Drug dose omission [Unknown]
  - Pain [Not Recovered/Not Resolved]
  - Product quality issue [Recovered/Resolved]
  - Wrong technique in drug usage process [Unknown]
  - Wrong technique in drug usage process [Unknown]
